FAERS Safety Report 9555601 (Version 1)
Quarter: 2013Q3

REPORT INFORMATION
  Report Type: Spontaneous
  Country: IT (occurrence: IT)
  Receive Date: 20130926
  Receipt Date: 20130926
  Transmission Date: 20140515
  Serious: Yes (Other)
  Sender: FDA-Public Use
  Company Number: IT-PFIZER INC-2013276196

PATIENT
  Age: 69 Year
  Sex: Female

DRUGS (4)
  1. FELDENE [Suspect]
     Indication: ARTHRALGIA
     Dosage: 20 MG, DAILY
     Route: 030
     Dates: start: 20130213, end: 20130218
  2. MUSCORIL [Suspect]
     Dosage: 4 MG, DAILY
     Route: 030
  3. EUTIROX [Concomitant]
  4. PRAVASELECT [Concomitant]

REACTIONS (2)
  - Epidermolysis [Recovered/Resolved]
  - Epistaxis [Recovered/Resolved]
